FAERS Safety Report 22279161 (Version 1)
Quarter: 2023Q2

REPORT INFORMATION
  Report Type: Other
  Country: US (occurrence: None)
  Receive Date: 20230503
  Receipt Date: 20230503
  Transmission Date: 20230721
  Serious: Yes (Other)
  Sender: FDA-Public Use
  Company Number: US-ROCHE-3336944

PATIENT
  Sex: Female
  Weight: 59.474 kg

DRUGS (3)
  1. OCREVUS [Suspect]
     Active Substance: OCRELIZUMAB
     Indication: Multiple sclerosis
     Dosage: NO
     Route: 042
     Dates: start: 20220815, end: 202208
  2. OCREVUS [Suspect]
     Active Substance: OCRELIZUMAB
     Dosage: YES
     Route: 042
     Dates: start: 20230322
  3. LAMIVUDINE [Concomitant]
     Active Substance: LAMIVUDINE

REACTIONS (4)
  - Hepatitis A [Recovered/Resolved]
  - Immune system disorder [Not Recovered/Not Resolved]
  - COVID-19 [Recovered/Resolved]
  - Hypersensitivity [Recovered/Resolved]

NARRATIVE: CASE EVENT DATE: 20220815
